FAERS Safety Report 6306180-5 (Version None)
Quarter: 2009Q3

REPORT INFORMATION
  Report Type: 
  Country: None (occurrence: None)
  Receive Date: 20090810
  Receipt Date: 20090810
  Transmission Date: 20100115
  Serious: Yes (Other)
  Sender: FDA-Public Use
  Company Number: None

PATIENT
  Age: 37 Year
  Sex: Female
  Weight: 63.5036 kg

DRUGS (1)
  1. THYROID TAB [Suspect]
     Indication: THYROIDECTOMY
     Dosage: 150 MG 1 PER DAY PO
     Route: 048
     Dates: start: 20041101, end: 20090809

REACTIONS (6)
  - ALOPECIA [None]
  - DEPRESSION [None]
  - FATIGUE [None]
  - HYPOTHYROIDISM [None]
  - PRODUCT QUALITY ISSUE [None]
  - WEIGHT INCREASED [None]
